FAERS Safety Report 6024321-4 (Version None)
Quarter: 2008Q4

REPORT INFORMATION
  Report Type: 
  Country: None (occurrence: None)
  Receive Date: 20081222
  Receipt Date: 20081118
  Transmission Date: 20090506
  Serious: No
  Sender: FDA-Public Use
  Company Number: SPV1-2008-02554

PATIENT
  Age: 8 Year
  Sex: Female
  Weight: 27.2 kg

DRUGS (1)
  1. VYVANSE [Suspect]
     Indication: ATTENTION DEFICIT/HYPERACTIVITY DISORDER
     Dosage: 20 MG, 1X/DAY:QD, ORAL
     Route: 048
     Dates: start: 20081016, end: 20081117

REACTIONS (3)
  - DRUG EFFECT INCREASED [None]
  - FLAT AFFECT [None]
  - LETHARGY [None]
